FAERS Safety Report 7086182-4 (Version None)
Quarter: 2010Q4

REPORT INFORMATION
  Report Type: 
  Country: None (occurrence: None)
  Receive Date: 20101020
  Receipt Date: 20101015
  Transmission Date: 20110411
  Serious: Yes (Hospitalization)
  Sender: FDA-Public Use
  Company Number: 2010026523

PATIENT
  Sex: Female

DRUGS (10)
  1. VIVAGLOBIN [Suspect]
     Indication: IMMUNODEFICIENCY COMMON VARIABLE
     Dosage: (4.8 G 1X/WEEK, 30ML (4.8G) SQ 15ML/SITE WEEKLY FORMERLY IN ABDOMEN NOW IN HER LEGS SUBCUTANEOUS)
     Route: 058
     Dates: start: 20060601
  2. PROZAC [Concomitant]
  3. MEDROL [Concomitant]
  4. ZYRTEC [Concomitant]
  5. SUDAFED S.A. [Concomitant]
  6. PREVACID [Concomitant]
  7. SEROQUEL [Concomitant]
  8. FORADIL [Concomitant]
  9. SPIRIVA [Concomitant]
  10. ALVESCO [Concomitant]

REACTIONS (10)
  - COLITIS ISCHAEMIC [None]
  - DIABETES MELLITUS [None]
  - GASTROINTESTINAL HAEMORRHAGE [None]
  - INFECTION [None]
  - INFUSION SITE ERYTHEMA [None]
  - INFUSION SITE SWELLING [None]
  - INFUSION SITE URTICARIA [None]
  - RASH [None]
  - RECTAL HAEMORRHAGE [None]
  - WHITE BLOOD CELL DISORDER [None]
